FAERS Safety Report 9148447 (Version 1)
Quarter: 2013Q1

REPORT INFORMATION
  Report Type: Spontaneous
  Country: US (occurrence: None)
  Receive Date: 20130228
  Receipt Date: 20130228
  Transmission Date: 20140127
  Serious: Yes (Hospitalization)
  Sender: FDA-Public Use
  Company Number: None

PATIENT
  Age: 58 Year
  Sex: Male
  Weight: 103.3 kg

DRUGS (2)
  1. XARELTO [Suspect]
     Indication: THROMBOSIS PROPHYLAXIS
     Dosage: 10MG  DAILY  PO
     Route: 048
     Dates: start: 20121116, end: 20121128
  2. XARELTO [Suspect]
     Indication: KNEE ARTHROPLASTY
     Dosage: 10MG  DAILY  PO
     Route: 048
     Dates: start: 20121116, end: 20121128

REACTIONS (1)
  - Pulmonary embolism [None]
